FAERS Safety Report 19140590 (Version 1)
Quarter: 2021Q2

REPORT INFORMATION
  Report Type: Spontaneous
  Country: ES (occurrence: ES)
  Receive Date: 20210415
  Receipt Date: 20210415
  Transmission Date: 20210717
  Serious: Yes (Life-Threatening, Hospitalization)
  Sender: FDA-Public Use
  Company Number: ES-PFIZER INC-2021408214

PATIENT
  Age: 54 Year
  Sex: Female

DRUGS (2)
  1. LYRICA [Suspect]
     Active Substance: PREGABALIN
     Dosage: 1500 MG/DAY (FREQ:24 H;10 CAPSULES)
     Route: 048
     Dates: start: 20210321, end: 20210321
  2. DIAZEPAM CINFA [Suspect]
     Active Substance: DIAZEPAM
     Dosage: 100 MG/DAY (FREQ:24 H;10 TABLETS)
     Route: 048
     Dates: start: 20210321, end: 20210321

REACTIONS (5)
  - Generalised tonic-clonic seizure [Recovered/Resolved]
  - Depressed level of consciousness [Recovered/Resolved]
  - Overdose [Unknown]
  - Aspiration [Recovered/Resolved]
  - Suicide attempt [Unknown]

NARRATIVE: CASE EVENT DATE: 20210321
